FAERS Safety Report 14078426 (Version 1)
Quarter: 2017Q4

REPORT INFORMATION
  Report Type: Spontaneous
  Country: US (occurrence: US)
  Receive Date: 20171011
  Receipt Date: 20171011
  Transmission Date: 20180321
  Serious: Yes (Other)
  Sender: FDA-Public Use
  Company Number: None

PATIENT
  Age: 55 Year
  Sex: Female
  Weight: 63 kg

DRUGS (8)
  1. OXYCODONE [Suspect]
     Active Substance: OXYCODONE
     Indication: PAIN MANAGEMENT
     Route: 048
     Dates: start: 20150326
  2. ESTRADIOL. [Concomitant]
     Active Substance: ESTRADIOL
  3. PERCOCET [Concomitant]
     Active Substance: ACETAMINOPHEN\OXYCODONE HYDROCHLORIDE
  4. LIPITOR [Concomitant]
     Active Substance: ATORVASTATIN CALCIUM
  5. AMBIEN [Concomitant]
     Active Substance: ZOLPIDEM TARTRATE
  6. VITAMINS [Concomitant]
     Active Substance: VITAMINS
  7. MINERALS [Concomitant]
     Active Substance: MINERALS
  8. PROZAC [Concomitant]
     Active Substance: FLUOXETINE HYDROCHLORIDE

REACTIONS (12)
  - Migraine [None]
  - Irritability [None]
  - Insomnia [None]
  - Dizziness [None]
  - Therapeutic response changed [None]
  - Product substitution issue [None]
  - Headache [None]
  - Dyspnoea [None]
  - Anxiety [None]
  - Pain [None]
  - Vomiting [None]
  - Feeling jittery [None]

NARRATIVE: CASE EVENT DATE: 20160222
